FAERS Safety Report 9503333 (Version 1)
Quarter: 2013Q3

REPORT INFORMATION
  Report Type: Spontaneous
  Country: GB (occurrence: GB)
  Receive Date: 20130906
  Receipt Date: 20130906
  Transmission Date: 20140515
  Serious: Yes (Life-Threatening)
  Sender: FDA-Public Use
  Company Number: GB-PFIZER INC-2013254112

PATIENT
  Age: 63 Year
  Sex: Female
  Weight: 79.82 kg

DRUGS (5)
  1. GABAPENTIN [Suspect]
     Indication: NEURALGIA
     Dosage: 300 MG, 1X/DAY
     Route: 048
     Dates: start: 20130626
  2. GABAPENTIN [Suspect]
     Dosage: 300 MG, 2X/DAY
     Route: 048
  3. GABAPENTIN [Suspect]
     Dosage: 300 MG, 3X/DAY
     Route: 048
     Dates: end: 20130630
  4. CO-AMILOZIDE [Concomitant]
  5. FLUOXETINE [Concomitant]

REACTIONS (4)
  - Swollen tongue [Recovered/Resolved]
  - Wheezing [Recovered/Resolved]
  - Local swelling [Recovered/Resolved]
  - Eye swelling [Recovered/Resolved]
